FAERS Safety Report 17608728 (Version 3)
Quarter: 2020Q2

REPORT INFORMATION
  Report Type: Report from Study
  Country: KR (occurrence: KR)
  Receive Date: 20200401
  Receipt Date: 20200522
  Transmission Date: 20200713
  Serious: Yes (Hospitalization)
  Sender: FDA-Public Use
  Company Number: KR-B.I. PHARMACEUTICALS,INC./RIDGEFIELD-2019-BI-106383

PATIENT
  Age: 63 Year
  Sex: Male

DRUGS (2)
  1. GILOTRIF [Suspect]
     Active Substance: AFATINIB
     Indication: NON-SMALL CELL LUNG CANCER
     Route: 048
     Dates: start: 20190920
  2. GILOTRIF [Suspect]
     Active Substance: AFATINIB
     Route: 048

REACTIONS (5)
  - Diarrhoea [Not Recovered/Not Resolved]
  - Dizziness [Not Recovered/Not Resolved]
  - Syncope [Recovered/Resolved]
  - Pruritus [Not Recovered/Not Resolved]
  - Cerebral cyst [Not Recovered/Not Resolved]

NARRATIVE: CASE EVENT DATE: 20190927
